FAERS Safety Report 5980050-4 (Version None)
Quarter: 2008Q4

REPORT INFORMATION
  Report Type: 
  Country: None (occurrence: None)
  Receive Date: 20081205
  Receipt Date: 20081126
  Transmission Date: 20090506
  Serious: Yes (Other)
  Sender: FDA-Public Use
  Company Number: IL-JNJFOC-20081200316

PATIENT
  Age: 50 Year
  Sex: Male

DRUGS (5)
  1. REMICADE [Suspect]
  2. REMICADE [Suspect]
  3. REMICADE [Suspect]
  4. REMICADE [Suspect]
  5. REMICADE [Suspect]
     Indication: PSORIATIC ARTHROPATHY

REACTIONS (2)
  - CRANIAL NERVE DISORDER [None]
  - TONGUE PARALYSIS [None]
